FAERS Safety Report 9172610 (Version 2)
Quarter: 2013Q2

REPORT INFORMATION
  Report Type: Spontaneous
  Country: US (occurrence: US)
  Receive Date: 20120911
  Receipt Date: 20130402
  Transmission Date: 20140414
  Serious: No
  Sender: FDA-Public Use
  Company Number: US-ASTRAZENECA-2012SE60284

PATIENT
  Age: 51 Year
  Sex: Female

DRUGS (28)
  1. NEXIUM [Suspect]
     Route: 048
  2. TOPROL XL [Suspect]
     Route: 048
  3. CRESTOR [Suspect]
     Route: 048
  4. SYMBICORT [Suspect]
     Dosage: 160/4.5 MCG, TWO PUFFS BY MOUTH  TWO TIMES A DAY
     Route: 055
  5. ACCOLATE [Suspect]
     Route: 048
  6. TRILIPIX [Suspect]
     Route: 065
  7. ELAVIL [Suspect]
     Route: 048
  8. ACCUPRIL [Concomitant]
     Route: 048
  9. ACTOS [Concomitant]
     Indication: HEPATIC STEATOSIS
     Dosage: 45MG TABLET EVERY MONDAY, WEDNESDAY AND FRIDAY
     Route: 048
  10. CLARINEX [Concomitant]
     Route: 048
  11. GLUCOTROL XL [Concomitant]
     Route: 048
  12. LOPID [Concomitant]
     Route: 048
  13. NORVASC [Concomitant]
     Route: 048
  14. NEURONTIN [Concomitant]
     Route: 048
  15. NEURONTIN [Concomitant]
     Route: 048
  16. SINGULAIR [Concomitant]
     Route: 048
  17. JANUMET [Concomitant]
     Dosage: 50-500 MG BID WTH MEALS
     Route: 048
  18. VYTORIN [Concomitant]
     Dosage: 10-40 10-40MG ONE TABLET NIGHTLY
     Route: 048
  19. ACCURETIC [Concomitant]
     Dosage: 20-12.5 MG, ONE TABLET, UNKNOWN
     Route: 048
  20. CHOLECALCIFEROL/VITAMIN D3 [Concomitant]
  21. CYANOCOBALAMIN/VITAMIN B12 [Concomitant]
     Route: 060
  22. LANTUS [Concomitant]
     Route: 058
  23. SYNTHROID [Concomitant]
     Indication: HYPOTHYROIDISM
     Route: 048
  24. MAXALT [Concomitant]
     Indication: MIGRAINE
     Route: 048
  25. LOVAZA [Concomitant]
     Route: 048
  26. NOVOLOG FLEXPEN [Concomitant]
     Route: 058
  27. PROVENTIL HFA [Concomitant]
     Indication: WHEEZING
     Route: 055
  28. TOPAMAX [Concomitant]
     Route: 048

REACTIONS (20)
  - Diabetes mellitus inadequate control [Unknown]
  - Migraine [Unknown]
  - Essential hypertension [Unknown]
  - Asthma [Unknown]
  - Rhinitis allergic [Unknown]
  - Vitamin B12 deficiency [Unknown]
  - Vitamin D deficiency [Unknown]
  - Back pain [Unknown]
  - Arthralgia [Unknown]
  - Blood cholesterol increased [Unknown]
  - Gastrooesophageal reflux disease [Unknown]
  - Hypothyroidism [Unknown]
  - Enthesopathy [Unknown]
  - Chest pain [None]
  - Snoring [None]
  - Neuropathy peripheral [None]
  - Insomnia [Unknown]
  - Pruritus [Unknown]
  - Constipation [None]
  - Abdominal pain [None]
